FAERS Safety Report 9767161 (Version 1)
Quarter: 2013Q4

REPORT INFORMATION
  Report Type: Spontaneous
  Country: US (occurrence: US)
  Receive Date: 20131217
  Receipt Date: 20131217
  Transmission Date: 20140711
  Serious: No
  Sender: FDA-Public Use
  Company Number: US-GLAXOSMITHKLINE-A1041752A

PATIENT
  Age: 56 Year
  Sex: Male
  Weight: 106.8 kg

DRUGS (9)
  1. VOTRIENT [Suspect]
     Indication: RENAL CELL CARCINOMA
     Dosage: 2TAB PER DAY
     Route: 048
     Dates: start: 20130910, end: 20130911
  2. AMBIEN [Concomitant]
  3. LISINOPRIL [Concomitant]
  4. PRAVASTATIN [Concomitant]
  5. CARVEDILOL [Concomitant]
  6. TAMSULOSIN [Concomitant]
  7. MORPHINE SULFATE [Concomitant]
  8. PERCOCET [Concomitant]
  9. ENBREL [Concomitant]

REACTIONS (9)
  - Ill-defined disorder [Unknown]
  - Urinary incontinence [Unknown]
  - Weight decreased [Unknown]
  - Amnesia [Unknown]
  - Insomnia [Unknown]
  - Headache [Unknown]
  - Personality change [Unknown]
  - Mood altered [Unknown]
  - Adverse drug reaction [Unknown]
